FAERS Safety Report 7072318-8 (Version None)
Quarter: 2010Q4

REPORT INFORMATION
  Report Type: 
  Country: None (occurrence: None)
  Receive Date: 20101029
  Receipt Date: 20100108
  Transmission Date: 20110411
  Serious: No
  Sender: FDA-Public Use
  Company Number: A0838501A

PATIENT
  Age: 87 Year
  Sex: Male

DRUGS (10)
  1. ADVAIR DISKUS 100/50 [Suspect]
     Indication: CHRONIC OBSTRUCTIVE PULMONARY DISEASE
     Dosage: 1PUFF TWICE PER DAY
     Route: 055
     Dates: start: 20100102
  2. SPIRIVA [Concomitant]
  3. LASIX [Concomitant]
  4. COUMADIN [Concomitant]
  5. LEVAQUIN [Concomitant]
  6. COLCHICINE [Concomitant]
  7. SPIRONOLACTONE [Concomitant]
  8. DIGOXIN [Concomitant]
  9. SIMVASTATIN [Concomitant]
  10. SYNTHROID [Concomitant]

REACTIONS (1)
  - CANDIDIASIS [None]
